FAERS Safety Report 5950852-9 (Version None)
Quarter: 2008Q4

REPORT INFORMATION
  Report Type: 
  Country: None (occurrence: None)
  Receive Date: 20081110
  Receipt Date: 20081031
  Transmission Date: 20090506
  Serious: Yes (Death)
  Sender: FDA-Public Use
  Company Number: GXKR2008CA10412

PATIENT

DRUGS (7)
  1. FENTANYL-100 [Suspect]
     Indication: BACK PAIN
     Dosage: 75 UG/HR, UNK, TRANSDERMAL, 125 UG/HR, UNK, TRANSDERMAL
     Route: 062
  2. FENTANYL-100 [Suspect]
     Indication: PAIN IN EXTREMITY
     Dosage: 75 UG/HR, UNK, TRANSDERMAL, 125 UG/HR, UNK, TRANSDERMAL
     Route: 062
  3. HYDROMORPHONE (NGX) (HYDROMORPHONE) UNKNOWN [Suspect]
     Indication: BACK PAIN
     Dosage: 2-4 MG, Q4H PRN, ORAL
     Route: 048
  4. HYDROMORPHONE (NGX) (HYDROMORPHONE) UNKNOWN [Suspect]
     Indication: PAIN IN EXTREMITY
     Dosage: 2-4 MG, Q4H PRN, ORAL
     Route: 048
  5. ACETAMINOPHEN AND CODEINE PHOSPHATE [Suspect]
     Indication: BACK PAIN
     Dosage: UNK, TO MAX. OF 480 MG CODEINE/DAY, UNKNOWN
  6. ACETAMINOPHEN AND CODEINE PHOSPHATE [Suspect]
     Indication: PAIN IN EXTREMITY
     Dosage: UNK, TO MAX. OF 480 MG CODEINE/DAY, UNKNOWN
  7. KETOROLAC (KETOROLAC) [Concomitant]

REACTIONS (4)
  - CONFUSIONAL STATE [None]
  - DRUG INTERACTION [None]
  - RESUSCITATION [None]
  - UNRESPONSIVE TO STIMULI [None]
